FAERS Safety Report 5514819-7 (Version None)
Quarter: 2007Q4

REPORT INFORMATION
  Report Type: 
  Country: None (occurrence: None)
  Receive Date: 20071113
  Receipt Date: 20071106
  Transmission Date: 20080405
  Serious: Yes (Hospitalization, Other)
  Sender: FDA-Public Use
  Company Number: US-SHR-US-2007-021895

PATIENT
  Age: 24 Year
  Sex: Female
  Weight: 81.2 kg

DRUGS (2)
  1. MIRENA [Suspect]
     Indication: CONTRACEPTION
     Dosage: 20 A?G/DAY, CONT
     Route: 015
     Dates: start: 20050730, end: 20070516
  2. MOTRIN [Concomitant]
     Dosage: UNK, AS REQ'D

REACTIONS (3)
  - INTRACRANIAL PRESSURE INCREASED [None]
  - INTRAOCULAR PRESSURE INCREASED [None]
  - PAPILLOEDEMA [None]
